FAERS Safety Report 8054218-X (Version None)
Quarter: 2012Q1

REPORT INFORMATION
  Report Type: 
  Country: None (occurrence: None)
  Receive Date: 20120118
  Receipt Date: 20120109
  Transmission Date: 20120608
  Serious: Yes (Hospitalization, Other)
  Sender: FDA-Public Use
  Company Number: AR-ROCHE-1030874

PATIENT
  Sex: Female

DRUGS (3)
  1. XOLAIR [Suspect]
     Indication: ASTHMA
     Dates: start: 20110430
  2. XOLAIR [Suspect]
     Dates: start: 20111101
  3. XOLAIR [Suspect]
     Dates: start: 20111207

REACTIONS (2)
  - PNEUMONIA [None]
  - ASTHMATIC CRISIS [None]
